FAERS Safety Report 9416400 (Version 2)
Quarter: 2013Q3

REPORT INFORMATION
  Report Type: Spontaneous
  Country: US (occurrence: US)
  Receive Date: 20130724
  Receipt Date: 20130807
  Transmission Date: 20140515
  Serious: No
  Sender: FDA-Public Use
  Company Number: US-PFIZER INC-2013214364

PATIENT
  Age: 65 Year
  Sex: Male

DRUGS (1)
  1. ALPRAZOLAM [Suspect]
     Indication: ANXIETY
     Dosage: 1 MG, 2X/DAY (AS NEEDED)
     Route: 048

REACTIONS (1)
  - Drug ineffective [Unknown]
